FAERS Safety Report 7536922-2 (Version None)
Quarter: 2011Q2

REPORT INFORMATION
  Report Type: 
  Country: None (occurrence: None)
  Receive Date: 20110609
  Receipt Date: 20110526
  Transmission Date: 20111010
  Serious: Yes (Hospitalization)
  Sender: FDA-Public Use
  Company Number: US-BAYER-201033911NA

PATIENT
  Age: 19 Year
  Sex: Female
  Weight: 132 kg

DRUGS (3)
  1. YAZ [Suspect]
     Dosage: UNK
     Dates: start: 20080101, end: 20090101
  2. YASMIN [Suspect]
     Indication: PREMENSTRUAL SYNDROME
     Dosage: UNK
     Dates: start: 20080101, end: 20090101
  3. NAPROXEN [Concomitant]
     Dosage: UNK
     Dates: start: 20040101

REACTIONS (2)
  - INJURY [None]
  - BILIARY DYSKINESIA [None]
